FAERS Safety Report 6432874-7 (Version None)
Quarter: 2009Q4

REPORT INFORMATION
  Report Type: 
  Country: None (occurrence: None)
  Receive Date: 20091109
  Receipt Date: 20091104
  Transmission Date: 20100525
  Serious: Yes (Death, Hospitalization, Other)
  Sender: FDA-Public Use
  Company Number: SE-CELGENEUS-150-21880-09101317

PATIENT
  Sex: Female
  Weight: 53 kg

DRUGS (17)
  1. REVLIMID [Suspect]
     Indication: MYELODYSPLASTIC SYNDROME
     Route: 048
     Dates: start: 20091005, end: 20091021
  2. REVLIMID [Suspect]
  3. HYDROXYUREA [Concomitant]
     Indication: DRUG USE FOR UNKNOWN INDICATION
     Route: 048
     Dates: start: 20091023, end: 20091025
  4. KETOGAN [Concomitant]
     Indication: PAIN
     Route: 065
     Dates: start: 20091019, end: 20091020
  5. ZOPIKLON [Concomitant]
     Indication: INSOMNIA
     Route: 065
     Dates: start: 20091016, end: 20091025
  6. IPRATROPIUM [Concomitant]
     Indication: DYSPNOEA
     Route: 065
     Dates: start: 20091019, end: 20091025
  7. ALBUTEROL [Concomitant]
     Indication: DYSPNOEA
     Route: 065
     Dates: start: 20091019, end: 20091020
  8. IMIPENEM AND CILASTATIN SODIUM [Concomitant]
     Route: 065
     Dates: start: 20091019, end: 20091025
  9. RINGER ACETAT [Concomitant]
     Indication: DRUG USE FOR UNKNOWN INDICATION
     Route: 065
     Dates: start: 20091020, end: 20091025
  10. METOPROLOL [Concomitant]
     Indication: ATRIAL FIBRILLATION
     Route: 065
     Dates: start: 20091020, end: 20091025
  11. GLYTRIN [Concomitant]
     Indication: DRUG USE FOR UNKNOWN INDICATION
     Route: 065
     Dates: start: 20091020, end: 20091025
  12. COCILLANA-ETYFIN [Concomitant]
     Indication: DRUG USE FOR UNKNOWN INDICATION
     Route: 065
     Dates: start: 20091021, end: 20091025
  13. ISOSORBIDE MONONITRATE [Concomitant]
     Indication: ANGINA PECTORIS
     Route: 065
     Dates: start: 20091022, end: 20091024
  14. FUROSEMIDE [Concomitant]
     Indication: DRUG USE FOR UNKNOWN INDICATION
     Route: 065
     Dates: start: 20091023, end: 20091025
  15. MORFIN [Concomitant]
     Indication: DRUG USE FOR UNKNOWN INDICATION
     Route: 065
     Dates: start: 20091022, end: 20091025
  16. DIAZEPAM [Concomitant]
     Indication: DRUG USE FOR UNKNOWN INDICATION
     Route: 065
     Dates: start: 20091022, end: 20091025
  17. BROMHEXIN EFEDRIN [Concomitant]
     Indication: COUGH
     Route: 065
     Dates: start: 20091020, end: 20091022

REACTIONS (4)
  - ACUTE MYELOID LEUKAEMIA [None]
  - INFECTION [None]
  - MYOCARDIAL INFARCTION [None]
  - PNEUMONIA [None]
